FAERS Safety Report 9004023 (Version 4)
Quarter: 2014Q3

REPORT INFORMATION
  Report Type: Spontaneous
  Country: US (occurrence: US)
  Receive Date: 20130108
  Receipt Date: 20140820
  Transmission Date: 20150326
  Serious: Yes (Hospitalization, Other)
  Sender: FDA-Public Use
  Company Number: US-009507513-1301USA000325

PATIENT
  Sex: Female
  Weight: 63.49 kg

DRUGS (2)
  1. IMITREX [Concomitant]
     Active Substance: SUMATRIPTAN\SUMATRIPTAN SUCCINATE
     Indication: MIGRAINE
     Dosage: UNK
     Dates: start: 200710
  2. NUVARING [Suspect]
     Active Substance: ETHINYL ESTRADIOL\ETONOGESTREL
     Indication: CONTRACEPTION
     Dosage: UNK
     Route: 067
     Dates: start: 20080304, end: 201001

REACTIONS (8)
  - Pulmonary embolism [Recovering/Resolving]
  - Animal bite [Recovered/Resolved]
  - Sinus tachycardia [Unknown]
  - Deep vein thrombosis [Recovered/Resolved]
  - Electrocardiogram ST segment abnormal [Unknown]
  - Cyanosis [Not Recovered/Not Resolved]
  - Hypokalaemia [Recovering/Resolving]
  - Arthroscopy [Recovering/Resolving]

NARRATIVE: CASE EVENT DATE: 20091116
